FAERS Safety Report 5052568-2 (Version None)
Quarter: 2006Q3

REPORT INFORMATION
  Report Type: 
  Country: None (occurrence: None)
  Receive Date: 20060717
  Receipt Date: 20060710
  Transmission Date: 20061208
  Serious: Yes (Life-Threatening)
  Sender: FDA-Public Use
  Company Number: US-GLAXOSMITHKLINE-A0611711A

PATIENT

DRUGS (1)
  1. PAXIL CR [Suspect]

REACTIONS (1)
  - HAEMORRHAGE [None]
